FAERS Safety Report 5321226-9 (Version None)
Quarter: 2007Q1

REPORT INFORMATION
  Report Type: 
  Country: None (occurrence: None)
  Receive Date: 20070215
  Receipt Date: 20061219
  Transmission Date: 20070707
  Serious: No
  Sender: FDA-Public Use
  Company Number: 200616986BWH

PATIENT
  Age: 49 Year
  Sex: Female
  Weight: 54.4316 kg

DRUGS (4)
  1. NEXAVAR [Suspect]
     Indication: OVARIAN CANCER
     Dosage: SEE IMAGE
     Dates: start: 20061101, end: 20060101
  2. NEXAVAR [Suspect]
     Indication: OVARIAN CANCER
     Dosage: SEE IMAGE
     Dates: start: 20061214
  3. AVASTIN [Suspect]
     Indication: OVARIAN CANCER
     Dosage: INTRAVENOUS
     Route: 042
     Dates: start: 20061204
  4. NEXIUM [Concomitant]

REACTIONS (2)
  - RASH [None]
  - VOMITING [None]
